FAERS Safety Report 12520104 (Version 1)
Quarter: 2016Q2

REPORT INFORMATION
  Report Type: Spontaneous
  Country: US (occurrence: US)
  Receive Date: 20160630
  Receipt Date: 20160630
  Transmission Date: 20160815
  Serious: Yes (Other)
  Sender: FDA-Public Use
  Company Number: US-TEVA-671609USA

PATIENT
  Sex: Female

DRUGS (1)
  1. ZECUITY [Suspect]
     Active Substance: SUMATRIPTAN SUCCINATE
     Dosage: HAS USED 4 PATCHES/DATES NOT PROVIDED
     Route: 062

REACTIONS (7)
  - Application site pain [Recovered/Resolved]
  - Wrong technique in product usage process [Unknown]
  - Application site urticaria [Recovered/Resolved]
  - Application site inflammation [Recovered/Resolved]
  - Application site burn [Recovered/Resolved]
  - Application site erythema [Recovered/Resolved]
  - Application site pruritus [Recovered/Resolved]
